FAERS Safety Report 18068129 (Version 1)
Quarter: 2020Q3

REPORT INFORMATION
  Report Type: Report from Study
  Country: AU (occurrence: AU)
  Receive Date: 20200724
  Receipt Date: 20200724
  Transmission Date: 20201103
  Serious: Yes (Other)
  Sender: FDA-Public Use
  Company Number: NVSC2020AU207876

PATIENT
  Age: 70 Year
  Sex: Male

DRUGS (1)
  1. EZETIMIBE. [Suspect]
     Active Substance: EZETIMIBE
     Indication: LOW DENSITY LIPOPROTEIN INCREASED
     Dosage: UNK
     Route: 065

REACTIONS (4)
  - Hypertension [Unknown]
  - Diabetes mellitus [Unknown]
  - Sleep apnoea syndrome [Unknown]
  - Drug ineffective [Unknown]
